FAERS Safety Report 8111044-0 (Version None)
Quarter: 2012Q1

REPORT INFORMATION
  Report Type: 
  Country: None (occurrence: None)
  Receive Date: 20120203
  Receipt Date: 20110309
  Transmission Date: 20120608
  Serious: No
  Sender: FDA-Public Use
  Company Number: US-GLAXOSMITHKLINE-A0917841A

PATIENT
  Age: 38 Year
  Sex: Female

DRUGS (1)
  1. LAMOTRIGINE [Suspect]
     Indication: BIPOLAR DISORDER
     Dosage: 200MG PER DAY
     Route: 048
     Dates: start: 20050501

REACTIONS (3)
  - DRUG INEFFECTIVE [None]
  - MATERNAL EXPOSURE DURING PREGNANCY [None]
  - CERVIX DISORDER [None]
